FAERS Safety Report 8998421 (Version 3)
Quarter: 2013Q1

REPORT INFORMATION
  Report Type: Report from Study
  Country: JP (occurrence: JP)
  Receive Date: 20130103
  Receipt Date: 20130228
  Transmission Date: 20140127
  Serious: Yes (Hospitalization)
  Sender: FDA-Public Use
  Company Number: JP-BAXTER-2012BAX029247

PATIENT
  Age: 68 Year
  Sex: Male
  Weight: 57.4 kg

DRUGS (27)
  1. CYCLOPHOSPHAMIDE FOR INJECTION, USP [Suspect]
     Indication: DIFFUSE LARGE B-CELL LYMPHOMA
     Route: 042
     Dates: start: 20121019
  2. PREDNISONE [Suspect]
     Indication: DIFFUSE LARGE B-CELL LYMPHOMA
     Route: 065
     Dates: start: 20121018
  3. DOXORUBICIN [Suspect]
     Indication: DIFFUSE LARGE B-CELL LYMPHOMA
     Route: 042
     Dates: start: 20121019
  4. VINCRISTINE [Suspect]
     Indication: DIFFUSE LARGE B-CELL LYMPHOMA
     Route: 040
     Dates: start: 20121019
  5. G-CSF [Suspect]
     Indication: NEUTROPENIA
     Route: 065
     Dates: end: 20121215
  6. MAGNESIUM OXIDE [Concomitant]
     Indication: CONSTIPATION
     Route: 065
  7. ASCORBIC ACID [Concomitant]
     Indication: PIGMENTATION DISORDER
     Route: 065
     Dates: start: 20121119
  8. SENNOSIDES [Concomitant]
     Indication: CONSTIPATION
     Route: 065
     Dates: start: 20121119, end: 20121209
  9. SENNOSIDES [Concomitant]
     Route: 065
     Dates: start: 20121208
  10. RABEPRAZOLE [Concomitant]
     Indication: GASTRITIS
     Route: 065
     Dates: start: 20121017, end: 20121209
  11. RABEPRAZOLE [Concomitant]
     Route: 065
     Dates: start: 20121218, end: 20121220
  12. RABEPRAZOLE [Concomitant]
     Route: 065
     Dates: start: 20121222
  13. BAKTAR [Concomitant]
     Indication: PNEUMOCYSTIS JIROVECII PNEUMONIA
     Route: 065
     Dates: start: 20121110, end: 20121209
  14. SULFAMETHOXAZOLE AND TRIMETHOPRIM [Concomitant]
     Indication: PNEUMOCYSTIS JIROVECII PNEUMONIA
     Route: 065
     Dates: start: 20121110, end: 20121209
  15. GRANISETRON [Concomitant]
     Indication: PREMEDICATION
     Route: 065
     Dates: start: 20121109, end: 20121109
  16. GRANISETRON [Concomitant]
     Route: 065
     Dates: start: 20121201, end: 20121201
  17. DIPHENHYDRAMINE HYDROCHLORIDE [Concomitant]
     Indication: PREMEDICATION
     Route: 065
     Dates: start: 20121130, end: 20121130
  18. PARACETAMOL [Concomitant]
     Indication: PREMEDICATION
     Route: 065
     Dates: start: 20121130, end: 20121130
  19. MAGNESIUM OXIDE [Concomitant]
     Indication: CONSTIPATION
     Route: 065
     Dates: start: 20121201
  20. BFLUID [Concomitant]
     Indication: PRODUCT USED FOR UNKNOWN INDICATION
     Route: 065
     Dates: start: 20121211, end: 20121218
  21. AMMONIUM GLYCYRRHIZATE [Concomitant]
     Indication: PRODUCT USED FOR UNKNOWN INDICATION
     Route: 065
     Dates: start: 20121211, end: 20121215
  22. MIYA-BM [Concomitant]
     Indication: CONSTIPATION
     Route: 065
     Dates: start: 20121221
  23. SODIUM FERROUS CITRATE [Concomitant]
     Indication: IRON DEFICIENCY ANAEMIA
     Route: 065
     Dates: start: 20121227, end: 20130102
  24. AMMONIUM GLYCYRRHIZATE [Concomitant]
     Indication: PRODUCT USED FOR UNKNOWN INDICATION
     Route: 065
     Dates: start: 20121211, end: 20121215
  25. CYSTEINE HYDROCHLORIDE [Concomitant]
     Indication: PRODUCT USED FOR UNKNOWN INDICATION
     Route: 065
  26. GLYCINE [Concomitant]
     Indication: PRODUCT USED FOR UNKNOWN INDICATION
     Route: 065
  27. SACCHARATED IRON OXIDE [Concomitant]
     Indication: IRON DEFICIENCY ANAEMIA
     Route: 065
     Dates: start: 20121228, end: 20130104

REACTIONS (1)
  - Ileal perforation [Recovered/Resolved]
